FAERS Safety Report 19657239 (Version 1)
Quarter: 2021Q3

REPORT INFORMATION
  Report Type: Spontaneous
  Country: US (occurrence: US)
  Receive Date: 20210804
  Receipt Date: 20210804
  Transmission Date: 20211014
  Serious: Yes (Other)
  Sender: FDA-Public Use
  Company Number: US-ASTRAZENECA-2021A652462

PATIENT
  Age: 37 Year
  Sex: Female
  Weight: 63.5 kg

DRUGS (7)
  1. PFIZER?BIONTECH COVID?19 VACCINE [Suspect]
     Active Substance: TOZINAMERAN
     Indication: PROPHYLAXIS
     Route: 065
     Dates: start: 20210713
  2. FLONASE [Concomitant]
     Active Substance: FLUTICASONE PROPIONATE
     Indication: HYPERSENSITIVITY
     Dosage: 2 SPRAYS IN EACH NOSTRIL ONCE DAILY
     Dates: start: 202003
  3. BREO ELLIPTA [Concomitant]
     Active Substance: FLUTICASONE FUROATE\VILANTEROL TRIFENATATE
     Indication: ASTHMA
     Dosage: 200MCG/25MCG 1 PUFF DAILY
  4. CLARITIN [Concomitant]
     Active Substance: LORATADINE
     Indication: HYPERSENSITIVITY
     Dosage: 10.0MG UNKNOWN
     Route: 048
     Dates: start: 202003
  5. NASACORT [Concomitant]
     Active Substance: TRIAMCINOLONE ACETONIDE
     Indication: HYPERSENSITIVITY
     Dosage: 2 SPRAYS IN EACH NOSTRIL ONCE DAILY
     Dates: start: 202003
  6. SYMBICORT [Suspect]
     Active Substance: BUDESONIDE\FORMOTEROL FUMARATE DIHYDRATE
     Route: 055
  7. CLARITIN [Concomitant]
     Active Substance: LORATADINE
     Indication: DYSPNOEA
     Dosage: 10.0MG UNKNOWN
     Route: 048
     Dates: start: 202003

REACTIONS (17)
  - Dizziness [Unknown]
  - COVID-19 [Unknown]
  - Cough [Recovering/Resolving]
  - Thrombosis [Not Recovered/Not Resolved]
  - Pneumonia [Unknown]
  - Heart rate increased [Unknown]
  - Abdominal pain [Recovering/Resolving]
  - Injection site pain [Recovering/Resolving]
  - Haemorrhage [Not Recovered/Not Resolved]
  - Chest pain [Recovering/Resolving]
  - Menstruation irregular [Unknown]
  - Endometriosis [Unknown]
  - Pain [Recovering/Resolving]
  - Hypertension [Recovering/Resolving]
  - Headache [Recovering/Resolving]
  - Oropharyngeal pain [Recovering/Resolving]
  - Dyspnoea [Recovering/Resolving]

NARRATIVE: CASE EVENT DATE: 20210713
